FAERS Safety Report 11393052 (Version 1)
Quarter: 2015Q3

REPORT INFORMATION
  Report Type: Spontaneous
  Country: US (occurrence: US)
  Receive Date: 20150818
  Receipt Date: 20150818
  Transmission Date: 20151125
  Serious: Yes (Hospitalization, Other)
  Sender: FDA-Public Use
  Company Number: US-GLAXOSMITHKLINE-US2015118124

PATIENT
  Age: 86 Year
  Sex: Male

DRUGS (4)
  1. REQUIP [Suspect]
     Active Substance: ROPINIROLE HYDROCHLORIDE
     Indication: PARKINSON^S DISEASE
     Dosage: 2 MG, BID
     Route: 048
     Dates: start: 20150717
  2. AMLODIPINE [Concomitant]
     Active Substance: AMLODIPINE BESYLATE
  3. LEVODOPA [Concomitant]
     Active Substance: LEVODOPA
  4. AZILECT [Concomitant]
     Active Substance: RASAGILINE MESYLATE

REACTIONS (3)
  - Visual impairment [Not Recovered/Not Resolved]
  - Cerebrovascular accident [Recovering/Resolving]
  - Vision blurred [Not Recovered/Not Resolved]

NARRATIVE: CASE EVENT DATE: 20150811
